FAERS Safety Report 23782550 (Version 1)
Quarter: 2024Q2

REPORT INFORMATION
  Report Type: Spontaneous
  Country: IT (occurrence: IT)
  Receive Date: 20240425
  Receipt Date: 20240425
  Transmission Date: 20240716
  Serious: Yes (Hospitalization)
  Sender: FDA-Public Use
  Company Number: IT-AUROBINDO-AUR-APL-2024-018746

PATIENT
  Age: 15 Year
  Sex: Female

DRUGS (1)
  1. RISPERIDONE [Suspect]
     Active Substance: RISPERIDONE
     Indication: Product used for unknown indication
     Dosage: 15 MILLIGRAM (PRESCRIBED DOSE: NOT AVAILABLE INFORMATION UNDERTAKEN DOSE: 15 MG/SINGLE ADMINISTRATIO
     Route: 048

REACTIONS (5)
  - Somnolence [Recovered/Resolved]
  - Accidental overdose [Recovered/Resolved]
  - Toxicity to various agents [Unknown]
  - Product administration error [Unknown]
  - Device use error [Unknown]

NARRATIVE: CASE EVENT DATE: 20220822
